FAERS Safety Report 4286845-X (Version None)
Quarter: 2004Q1

REPORT INFORMATION
  Report Type: 
  Country: None (occurrence: None)
  Receive Date: 20040204
  Receipt Date: 20040126
  Transmission Date: 20041129
  Serious: Yes (Hospitalization)
  Sender: FDA-Public Use
  Company Number: 2004005992

PATIENT
  Age: 38 Year
  Sex: Female

DRUGS (4)
  1. NEURONTIN [Suspect]
     Indication: ILL-DEFINED DISORDER
     Dosage: ORAL
     Route: 048
     Dates: end: 20031207
  2. PARACETAMOL (PARACETAMOL) [Suspect]
     Indication: ILL-DEFINED DISORDER
     Dosage: 4 GRAM, ORAL
     Route: 048
     Dates: end: 20031207
  3. AMITRIPTYLINE HYDROCHLORIDE [Suspect]
     Indication: ILL-DEFINED DISORDER
     Dosage: ORAL
     Route: 048
     Dates: end: 20031207
  4. MORPHINE SULFATE [Suspect]
     Indication: ILL-DEFINED DISORDER
     Dates: end: 20031207

REACTIONS (1)
  - HEPATITIS FULMINANT [None]
